FAERS Safety Report 7790715-X (Version None)
Quarter: 2011Q3

REPORT INFORMATION
  Report Type: 
  Country: None (occurrence: None)
  Receive Date: 20110930
  Receipt Date: 20090429
  Transmission Date: 20111222
  Serious: Yes (Death, Hospitalization)
  Sender: FDA-Public Use
  Company Number: PHHY2010TW17754

PATIENT
  Sex: Female

DRUGS (2)
  1. SPRYCEL [Concomitant]
     Dates: start: 20090702, end: 20091130
  2. GLEEVEC [Suspect]
     Indication: CHRONIC MYELOID LEUKAEMIA
     Dosage: 800 MG,
     Route: 048
     Dates: start: 20090429

REACTIONS (4)
  - INFECTION [None]
  - DEPRESSION [None]
  - WHITE BLOOD CELL COUNT DECREASED [None]
  - VOMITING [None]
